FAERS Safety Report 8946842 (Version 1)
Quarter: 2012Q4

REPORT INFORMATION
  Report Type: 
  Country: US (occurrence: US)
  Receive Date: 20121205
  Receipt Date: 20121205
  Transmission Date: 20130627
  Serious: Yes (Hospitalization)
  Sender: FDA-Public Use
  Company Number: US-GLAXOSMITHKLINE-A1003227A

PATIENT
  Age: 50 Year
  Sex: Female

DRUGS (2)
  1. VENTOLIN [Suspect]
     Indication: ASTHMA
     Route: 055
  2. ADVAIR [Suspect]
     Indication: ASTHMA
     Route: 055

REACTIONS (3)
  - Infection [Recovered/Resolved]
  - Nasopharyngitis [Recovered/Resolved]
  - White blood cell disorder [Recovered/Resolved]
